FAERS Safety Report 14255559 (Version 3)
Quarter: 2018Q1

REPORT INFORMATION
  Report Type: Spontaneous
  Country: US (occurrence: US)
  Receive Date: 20171206
  Receipt Date: 20180322
  Transmission Date: 20180508
  Serious: Yes (Other)
  Sender: FDA-Public Use
  Company Number: US-BAYER-2017-233448

PATIENT
  Age: 20 Year
  Sex: Female
  Weight: 94.33 kg

DRUGS (6)
  1. MIRENA [Suspect]
     Active Substance: LEVONORGESTREL
     Indication: CONTRACEPTION
     Dosage: 20 MCG/24HR, CONT
     Route: 015
     Dates: start: 20171120, end: 20171127
  2. CONCEPT [Concomitant]
  3. AMBIEN [Concomitant]
     Active Substance: ZOLPIDEM TARTRATE
  4. MIRENA [Suspect]
     Active Substance: LEVONORGESTREL
     Indication: CONTRACEPTION
  5. ZOLOFT [Concomitant]
     Active Substance: SERTRALINE HYDROCHLORIDE
  6. MICRONOR [Concomitant]
     Active Substance: NORETHINDRONE

REACTIONS (3)
  - Device dislocation [None]
  - Pelvic pain [Not Recovered/Not Resolved]
  - Dyspareunia [None]

NARRATIVE: CASE EVENT DATE: 20171127
